FAERS Safety Report 13868782 (Version 2)
Quarter: 2017Q4

REPORT INFORMATION
  Report Type: Report from Study
  Country: CL (occurrence: CL)
  Receive Date: 20170815
  Receipt Date: 20171004
  Transmission Date: 20180320
  Serious: Yes (Other)
  Sender: FDA-Public Use
  Company Number: CL-UCBSA-2017031543

PATIENT
  Age: 13 Year
  Sex: Female

DRUGS (6)
  1. LAMOTRIGINE. [Concomitant]
     Active Substance: LAMOTRIGINE
     Indication: PARTIAL SEIZURES
     Dosage: 225 MG, 2X/DAY (BID)
     Route: 048
     Dates: end: 201707
  2. LACOSAMIDE. [Suspect]
     Active Substance: LACOSAMIDE
     Indication: PARTIAL SEIZURES
     Dosage: 200 MG, 2X/DAY (BID)
     Route: 048
     Dates: start: 20160914, end: 201707
  3. LACOSAMIDE. [Suspect]
     Active Substance: LACOSAMIDE
     Dosage: 100 MG, 2X/DAY (BID)
     Route: 048
     Dates: start: 20170720, end: 20170722
  4. CLOBAZAM [Concomitant]
     Active Substance: CLOBAZAM
     Dosage: UNK UNK, 2X/DAY (BID)
     Route: 048
     Dates: start: 201707, end: 20170722
  5. CLOBAZAM [Concomitant]
     Active Substance: CLOBAZAM
     Indication: PARTIAL SEIZURES
     Dosage: 10 MG, 2X/DAY (BID)
     Route: 048
     Dates: end: 201707
  6. LAMOTRIGINE. [Concomitant]
     Active Substance: LAMOTRIGINE
     Dosage: UNK UNK, 2X/DAY (BID)
     Route: 048
     Dates: start: 201707, end: 20170722

REACTIONS (2)
  - Seizure [Recovered/Resolved]
  - Generalised tonic-clonic seizure [Recovered/Resolved]

NARRATIVE: CASE EVENT DATE: 201705
